FAERS Safety Report 25316193 (Version 1)
Quarter: 2025Q2

REPORT INFORMATION
  Report Type: Report from Study
  Country: AR (occurrence: AR)
  Receive Date: 20250515
  Receipt Date: 20250515
  Transmission Date: 20250717
  Serious: Yes (Hospitalization, Other)
  Sender: ROCHE
  Company Number: AR-002147023-NVSC2020AR294441

PATIENT
  Age: 83 Year
  Sex: Male

DRUGS (2)
  1. XOLAIR [Suspect]
     Active Substance: OMALIZUMAB
     Indication: Asthma
     Dosage: 300 MG, QMO
     Route: 058
     Dates: start: 20140101
  2. XOLAIR [Suspect]
     Active Substance: OMALIZUMAB
     Dosage: 300.00 MILLIGRAM PER MILLILITRE, EVERY 4 WEEKS
     Route: 058
     Dates: start: 2015

REACTIONS (5)
  - Hyperglycaemia [Recovered/Resolved]
  - Diabetes mellitus [Not Recovered/Not Resolved]
  - COVID-19 [Recovered/Resolved]
  - Bronchitis [Recovered/Resolved]
  - Limb injury [Unknown]

NARRATIVE: CASE EVENT DATE: 20200926
